FAERS Safety Report 4596477-1 (Version None)
Quarter: 2005Q1

REPORT INFORMATION
  Report Type: 
  Country: None (occurrence: None)
  Receive Date: 20050228
  Receipt Date: 20050216
  Transmission Date: 20050727
  Serious: Yes (Death, Hospitalization)
  Sender: FDA-Public Use
  Company Number: S03-FRA-02923-01

PATIENT
  Age: 83 Year
  Sex: Female

DRUGS (7)
  1. MEMANTINE HCL [Suspect]
     Dosage: 20 MG QD PO
     Route: 048
     Dates: end: 20030113
  2. MEMANTINE HCL [Suspect]
     Dosage: 15 MG PO
     Route: 048
  3. MEMANTINE HCL [Suspect]
     Dosage: 10 MG PO
     Route: 048
  4. MEMANTINE HCL [Suspect]
     Dosage: 5 MG QD PO
     Route: 048
     Dates: start: 20021201
  5. ALDACTONE [Concomitant]
  6. TANAKAN (GINKGO BILOBA EXTRACT) [Concomitant]
  7. ARICEPT [Concomitant]

REACTIONS (6)
  - AGGRESSION [None]
  - CEREBRAL ISCHAEMIA [None]
  - FOOD AVERSION [None]
  - GASTROINTESTINAL DISORDER [None]
  - NAUSEA [None]
  - TREMOR [None]
